FAERS Safety Report 9057947 (Version 1)
Quarter: 2013Q1

REPORT INFORMATION
  Report Type: Spontaneous
  Country: NL (occurrence: NL)
  Receive Date: 20130210
  Receipt Date: 20130210
  Transmission Date: 20140127
  Serious: Yes (Life-Threatening, Other)
  Sender: FDA-Public Use
  Company Number: NL-TEVA-383594ISR

PATIENT
  Sex: Male

DRUGS (15)
  1. ATORVASTATINE PFIZER [Suspect]
     Dosage: 40 MILLIGRAM DAILY;
     Dates: end: 201211
  2. ATORVASTATINE PFIZER [Suspect]
     Dosage: 40 MILLIGRAM DAILY;
  3. OXAZEPAM [Concomitant]
  4. RITMONORM [Concomitant]
  5. OMEPRAZOL [Concomitant]
  6. TILDIEM 300 MG [Concomitant]
  7. NEDIOS [Concomitant]
  8. ISOSORBIDEMONONITRAAT [Concomitant]
  9. ACETYLSALICYLZUUR [Concomitant]
  10. PERINDOPRIL [Concomitant]
  11. SPIRIVA INHALATOR [Concomitant]
  12. BECLOMETHASON [Concomitant]
  13. FORADIL [Concomitant]
  14. SEREVENT [Concomitant]
  15. BERODUAL [Concomitant]

REACTIONS (2)
  - Prostate cancer [Not Recovered/Not Resolved]
  - Prostatic disorder [Recovered/Resolved]
